FAERS Safety Report 4717618-9 (Version None)
Quarter: 2005Q3

REPORT INFORMATION
  Report Type: 
  Country: None (occurrence: None)
  Receive Date: 20050712
  Receipt Date: 20050502
  Transmission Date: 20060218
  Serious: No
  Sender: FDA-Public Use
  Company Number: 2005S1000024

PATIENT
  Age: 69 Year
  Sex: Female
  Weight: 99 kg

DRUGS (30)
  1. CUBICIN [Suspect]
     Indication: ARTHRITIS INFECTIVE
     Dosage: 500 MG, Q24H; IV
     Route: 042
     Dates: start: 20050215, end: 20050216
  2. METFORMIN [Concomitant]
  3. AVAPRO [Concomitant]
  4. DOCUSATE [Concomitant]
  5. GLIBENCLAMIDE [Concomitant]
  6. COLESTIPOL [Concomitant]
  7. HUMULIN N [Concomitant]
  8. PANTOPRAZOLE [Concomitant]
  9. WARFARIN [Concomitant]
  10. HYDROMORPHONE HCL [Concomitant]
  11. GLUCOVANCE [Concomitant]
  12. HUMULIN R [Concomitant]
  13. NEURONTIN [Concomitant]
  14. FLEXERIL [Concomitant]
  15. LORTAB [Concomitant]
  16. POTASSIUM CHLORIDE [Concomitant]
  17. ACIPHEX [Concomitant]
  18. ANTIVERT [Concomitant]
  19. PARAFON FORTE [Concomitant]
  20. SYNERCID [Concomitant]
  21. VANCOMYCIN [Concomitant]
  22. CEFEPIME [Concomitant]
  23. RIFAMPIN [Concomitant]
  24. METHYLENE BLUE [Concomitant]
  25. NEBCIN [Concomitant]
  26. PROPOFOL [Concomitant]
  27. FENTANYL [Concomitant]
  28. MORPHINE SULFATE [Concomitant]
  29. BACITRACIN [Concomitant]
  30. SEVOFLURANE [Concomitant]

REACTIONS (1)
  - BLOOD CREATININE INCREASED [None]
